FAERS Safety Report 22598453 (Version 8)
Quarter: 2023Q4

REPORT INFORMATION
  Report Type: Report from Study
  Country: BR (occurrence: BR)
  Receive Date: 20230614
  Receipt Date: 20231015
  Transmission Date: 20240110
  Serious: Yes (Other)
  Sender: FDA-Public Use
  Company Number: BR-002147023-NVSC2023BR116224

PATIENT
  Age: 59 Year
  Sex: Female

DRUGS (7)
  1. KISQALI [Suspect]
     Active Substance: RIBOCICLIB
     Indication: Breast cancer
     Dosage: 63 DOSAGE FORM, QD (3 DOSAGE FORM, 21D (FOR 21 DAYS))
     Route: 065
     Dates: start: 20230421
  2. KISQALI [Suspect]
     Active Substance: RIBOCICLIB
     Dosage: (3 WAYS OF DOSAGE)
     Route: 065
  3. KISQALI [Suspect]
     Active Substance: RIBOCICLIB
     Dosage: 3 (UNIT NOT REPORTED)
     Route: 065
  4. KISQALI [Suspect]
     Active Substance: RIBOCICLIB
     Dosage: 2 DOSAGE FORM, QD
     Route: 065
  5. KISQALI [Suspect]
     Active Substance: RIBOCICLIB
     Dosage: 2 (UNIT NOT REPORTED)
     Route: 065
  6. KISQALI [Suspect]
     Active Substance: RIBOCICLIB
     Dosage: UNK
     Route: 065
  7. ANASTROZOLE [Suspect]
     Active Substance: ANASTROZOLE
     Indication: Product used for unknown indication
     Dosage: 1 DOSAGE FORM
     Route: 065

REACTIONS (21)
  - Diabetes mellitus [Not Recovered/Not Resolved]
  - Metastases to bone [Not Recovered/Not Resolved]
  - Monoplegia [Recovering/Resolving]
  - Illness [Unknown]
  - Decreased immune responsiveness [Recovered/Resolved]
  - Pruritus [Recovering/Resolving]
  - Rash [Unknown]
  - Memory impairment [Not Recovered/Not Resolved]
  - Apathy [Recovering/Resolving]
  - Pain in extremity [Not Recovered/Not Resolved]
  - Malaise [Recovered/Resolved]
  - Decreased immune responsiveness [Recovering/Resolving]
  - Alopecia [Unknown]
  - Urticaria [Recovering/Resolving]
  - Skin exfoliation [Recovering/Resolving]
  - Weight increased [Unknown]
  - Pain [Recovering/Resolving]
  - Hypoaesthesia [Recovering/Resolving]
  - Asthenia [Recovering/Resolving]
  - Decreased appetite [Recovered/Resolved]
  - Nausea [Recovered/Resolved]

NARRATIVE: CASE EVENT DATE: 20230401
